FAERS Safety Report 10633230 (Version 2)
Quarter: 2014Q4

REPORT INFORMATION
  Report Type: Spontaneous
  Country: US (occurrence: US)
  Receive Date: 20141205
  Receipt Date: 20141224
  Transmission Date: 20150529
  Serious: Yes (Death, Hospitalization, Other)
  Sender: FDA-Public Use
  Company Number: US-BRISTOL-MYERS SQUIBB COMPANY-21499926

PATIENT
  Age: 73 Year
  Sex: Male

DRUGS (11)
  1. LOSARTAN [Concomitant]
     Active Substance: LOSARTAN
  2. ELIQUIS [Suspect]
     Active Substance: APIXABAN
     Dosage: 5 MG, BID
     Route: 048
  3. LIPITOR [Concomitant]
     Active Substance: ATORVASTATIN CALCIUM
  4. METOPROLOL [Concomitant]
     Active Substance: METOPROLOL
  5. OMEPRAZOLE. [Concomitant]
     Active Substance: OMEPRAZOLE
  6. VITAMIN D                          /00107901/ [Concomitant]
     Active Substance: ERGOCALCIFEROL
  7. METFORMIN [Concomitant]
     Active Substance: METFORMIN HYDROCHLORIDE
     Indication: DIABETES MELLITUS
  8. GLIMEPIRIDE A [Concomitant]
     Indication: DIABETES MELLITUS
  9. FISH OIL [Concomitant]
     Active Substance: FISH OIL
  10. DIGOXIN. [Concomitant]
     Active Substance: DIGOXIN
  11. JANUVIA [Concomitant]
     Active Substance: SITAGLIPTIN PHOSPHATE
     Indication: DIABETES MELLITUS

REACTIONS (2)
  - Ischaemic stroke [Fatal]
  - Nephrolithiasis [Unknown]

NARRATIVE: CASE EVENT DATE: 201410
